FAERS Safety Report 11860118 (Version 4)
Quarter: 2016Q3

REPORT INFORMATION
  Report Type: Report from Study
  Country: KR (occurrence: KR)
  Receive Date: 20151222
  Receipt Date: 20160818
  Transmission Date: 20161109
  Serious: Yes (Hospitalization)
  Sender: FDA-Public Use
  Company Number: KR-ASTRAZENECA-2015SF26944

PATIENT
  Age: 24623 Day
  Sex: Female

DRUGS (12)
  1. ASPIRIN. [Concomitant]
     Active Substance: ASPIRIN
     Indication: PROPHYLAXIS
     Route: 048
  2. BAMEDIN [Concomitant]
     Indication: ABDOMINAL PAIN UPPER
     Route: 048
  3. ROBETIN [Concomitant]
     Indication: TYPE 2 DIABETES MELLITUS
     Route: 048
  4. KANARB [Concomitant]
     Indication: HYPERTENSION
     Route: 048
  5. AZD6140 [Suspect]
     Active Substance: TICAGRELOR
     Indication: CARDIOVASCULAR EVENT PROPHYLAXIS
     Route: 048
     Dates: start: 20160317
  6. NITROGLYCERIN SL [Concomitant]
     Indication: VASODILATATION
     Dosage: 0.6MG AS REQUIRED
     Route: 060
  7. DIABEX [Concomitant]
     Active Substance: METFORMIN HYDROCHLORIDE
     Indication: TYPE 2 DIABETES MELLITUS
     Route: 048
  8. DILTERAN SR [Concomitant]
     Indication: HYPERTENSION
     Route: 048
  9. MOLSITON [Concomitant]
     Indication: VASODILATATION
     Route: 048
  10. ANGIBID S.R. [Concomitant]
     Indication: VASODILATATION
     Route: 048
  11. AZD6140 [Suspect]
     Active Substance: TICAGRELOR
     Indication: CARDIOVASCULAR EVENT PROPHYLAXIS
     Route: 048
     Dates: start: 20151021, end: 20151214
  12. SIGMART [Concomitant]
     Active Substance: NICORANDIL
     Indication: VASODILATATION
     Route: 048

REACTIONS (1)
  - Anaemia [Recovered/Resolved]

NARRATIVE: CASE EVENT DATE: 20151107
